FAERS Safety Report 13948021 (Version 1)
Quarter: 2017Q3

REPORT INFORMATION
  Report Type: Spontaneous
  Country: US (occurrence: US)
  Receive Date: 20170908
  Receipt Date: 20170908
  Transmission Date: 20171128
  Serious: No
  Sender: FDA-Public Use
  Company Number: US-ALVOGEN-2016-ALVOGEN-029525

PATIENT
  Age: 55 Year
  Sex: Male

DRUGS (1)
  1. METHENAMINE HIPPURATE. [Suspect]
     Active Substance: METHENAMINE HIPPURATE
     Indication: PRODUCT USED FOR UNKNOWN INDICATION

REACTIONS (1)
  - False positive investigation result [Unknown]

NARRATIVE: CASE EVENT DATE: 201608
